FAERS Safety Report 5774754-6 (Version None)
Quarter: 2008Q2

REPORT INFORMATION
  Report Type: 
  Country: None (occurrence: None)
  Receive Date: 20080612
  Receipt Date: 20080527
  Transmission Date: 20081010
  Serious: Yes (Other)
  Sender: FDA-Public Use
  Company Number: 2008S1006690

PATIENT
  Age: 16 Year
  Sex: Female

DRUGS (3)
  1. AMNESTEEM [Suspect]
     Indication: ACNE
     Dosage: 40 MG; TWICE A DAY; ORAL
     Route: 048
     Dates: start: 20080116, end: 20080401
  2. BACTRIM [Suspect]
     Dosage: ORAL
     Route: 048
     Dates: start: 20080323, end: 20080324
  3. ORTHO TRI-CYCLEN [Concomitant]

REACTIONS (6)
  - EPHELIDES [None]
  - IMPETIGO [None]
  - OTORRHOEA [None]
  - SCAB [None]
  - SWELLING [None]
  - URTICARIA [None]
